FAERS Safety Report 15030304 (Version 3)
Quarter: 2018Q3

REPORT INFORMATION
  Report Type: Report from Study
  Country: MX (occurrence: MX)
  Receive Date: 20180619
  Receipt Date: 20180716
  Transmission Date: 20181010
  Serious: Yes (Other)
  Sender: FDA-Public Use
  Company Number: MX-INCYTE CORPORATION-2018IN005833

PATIENT

DRUGS (12)
  1. FOLIC ACID. [Concomitant]
     Active Substance: FOLIC ACID
     Indication: PROPHYLAXIS
     Dosage: 2 OT, QD
     Route: 048
  2. REVOLADE [Suspect]
     Active Substance: ELTROMBOPAG
     Indication: MYELOFIBROSIS
     Dosage: 1 OT, EVERY THIRD DAY
     Route: 048
     Dates: start: 201707, end: 201803
  3. JAKAVI [Suspect]
     Active Substance: RUXOLITINIB
     Dosage: 2 OT, BID (1 IN THE MORNING AND 1 IN THE AFTERNOON)
     Route: 048
  4. POTASSIUM CHLORIDE. [Concomitant]
     Active Substance: POTASSIUM CHLORIDE
     Indication: MUSCLE SPASMS
     Dosage: 1 OT, PRN
     Route: 048
     Dates: start: 201710, end: 201711
  5. JAKAVI [Suspect]
     Active Substance: RUXOLITINIB
     Dosage: 20 MG, QD
     Route: 048
     Dates: start: 201710
  6. JAKAVI [Suspect]
     Active Substance: RUXOLITINIB
     Indication: MYELOFIBROSIS
     Dosage: UNK
     Route: 048
  7. BIOYETIN [Concomitant]
     Indication: WHITE BLOOD CELL COUNT ABNORMAL
     Dosage: 1 OT, (MONDAY,WEDNESDAY AND FRIDAY)
     Route: 058
  8. JAKAVI [Suspect]
     Active Substance: RUXOLITINIB
     Dosage: 15 MG, QD
     Route: 048
     Dates: start: 201709, end: 201710
  9. REVOLADE [Suspect]
     Active Substance: ELTROMBOPAG
     Dosage: UNK
     Route: 065
  10. FILATIL [Concomitant]
     Indication: RED BLOOD CELL COUNT ABNORMAL
     Dosage: 600 MG, (TUESDAY AND THURSDAY)
     Route: 058
  11. JAKAVI [Suspect]
     Active Substance: RUXOLITINIB
     Dosage: 5 MG, QD
     Route: 048
     Dates: start: 201708, end: 201709
  12. ATACAND [Concomitant]
     Active Substance: CANDESARTAN CILEXETIL
     Indication: HYPERTENSION
     Dosage: 1 OT, QD
     Route: 048

REACTIONS (4)
  - Haemoglobin decreased [Recovering/Resolving]
  - Muscle spasms [Recovered/Resolved]
  - Product use in unapproved indication [Unknown]
  - Respiratory tract infection [Recovering/Resolving]

NARRATIVE: CASE EVENT DATE: 20180528
